APPROVED DRUG PRODUCT: CELECOXIB
Active Ingredient: CELECOXIB
Strength: 200MG
Dosage Form/Route: CAPSULE;ORAL
Application: A213598 | Product #001 | TE Code: AB
Applicant: NANJING SIMCERE DONGYUAN PHARMACEUTICAL CO LTD
Approved: May 13, 2020 | RLD: No | RS: No | Type: RX